FAERS Safety Report 8905736 (Version 1)
Quarter: 2012Q4

REPORT INFORMATION
  Report Type: 
  Country: CA (occurrence: CA)
  Receive Date: 20121109
  Receipt Date: 20121109
  Transmission Date: 20130627
  Serious: Yes (Hospitalization, Other)
  Sender: FDA-Public Use
  Company Number: PHMT2006CA01864

PATIENT
  Sex: Male

DRUGS (5)
  1. SANDOSTATIN LAR [Suspect]
     Indication: ACROMEGALY
     Dosage: 30 mg, every 4 weeks
     Dates: start: 20001101
  2. FLOVENT [Concomitant]
  3. SEREVENT [Concomitant]
  4. VENTOLIN NEBULES PF [Concomitant]
  5. SINGULAIR [Concomitant]

REACTIONS (9)
  - Aneurysm [Unknown]
  - Arterial haemorrhage [Unknown]
  - Dyspnoea [Unknown]
  - General physical health deterioration [Unknown]
  - Back pain [Not Recovered/Not Resolved]
  - Pain in extremity [Unknown]
  - Weight fluctuation [Unknown]
  - Decreased appetite [Unknown]
  - Hyperglycaemia [Unknown]
